FAERS Safety Report 5394690-7 (Version None)
Quarter: 2007Q3

REPORT INFORMATION
  Report Type: 
  Country: None (occurrence: None)
  Receive Date: 20070723
  Receipt Date: 20070711
  Transmission Date: 20080115
  Serious: Yes (Hospitalization)
  Sender: FDA-Public Use
  Company Number: PFIZER INC-2007005156

PATIENT
  Age: 73 Year
  Sex: Male

DRUGS (14)
  1. SU-011,248 [Suspect]
     Indication: HEPATIC NEOPLASM MALIGNANT
     Route: 048
  2. ALDACTONE [Concomitant]
  3. AVANDIA [Concomitant]
  4. QUINAPRIL [Concomitant]
  5. TRIAZOLAM [Concomitant]
  6. CELEXA [Concomitant]
  7. LOPERAMIDE HYDROCHLORIDE [Concomitant]
  8. LASIX [Concomitant]
  9. LOMOTIL [Concomitant]
  10. LOVASTIN [Concomitant]
  11. MEGACE [Concomitant]
  12. OMEPRAZOLE [Concomitant]
  13. OXYCONTIN [Concomitant]
  14. VIAGRA [Concomitant]

REACTIONS (3)
  - DEHYDRATION [None]
  - HYPONATRAEMIA [None]
  - MENTAL STATUS CHANGES [None]
